FAERS Safety Report 20420930 (Version 1)
Quarter: 2022Q1

REPORT INFORMATION
  Report Type: Report from Study
  Country: US (occurrence: US)
  Receive Date: 20220203
  Receipt Date: 20220203
  Transmission Date: 20220423
  Serious: Yes (Hospitalization)
  Sender: FDA-Public Use
  Company Number: US-Clinigen Group PLC/ Clinigen Healthcare Ltd-US-CLGN-21-00551

PATIENT
  Age: 65 Year
  Sex: Female
  Weight: 70.2 kg

DRUGS (6)
  1. PROLEUKIN [Suspect]
     Active Substance: ALDESLEUKIN
     Indication: Metastatic malignant melanoma
     Route: 042
     Dates: start: 20210907, end: 20210909
  2. CYCLOPHOSPHAMIDE [Suspect]
     Active Substance: CYCLOPHOSPHAMIDE
     Indication: Metastatic malignant melanoma
     Route: 042
     Dates: start: 20210831, end: 20210901
  3. LIFILEUCEL [Suspect]
     Active Substance: LIFILEUCEL
     Indication: Metastatic malignant melanoma
     Route: 042
     Dates: start: 20210907, end: 20210907
  4. FLUDARABINE [Suspect]
     Active Substance: FLUDARABINE PHOSPHATE
     Indication: Metastatic malignant melanoma
     Route: 042
     Dates: start: 20210902, end: 20210906
  5. DIATRIZOATE MEGLUMINE-DIATRIZOATE SODIUM [Concomitant]
     Indication: Therapeutic procedure
     Dates: start: 20211001, end: 20211001
  6. INVESTIGATIONAL PRODUCT [Suspect]
     Active Substance: INVESTIGATIONAL PRODUCT

REACTIONS (2)
  - Hyponatraemia [Recovered/Resolved]
  - Pyrexia [Recovered/Resolved]

NARRATIVE: CASE EVENT DATE: 20210929
